FAERS Safety Report 13380855 (Version 2)
Quarter: 2017Q2

REPORT INFORMATION
  Report Type: Spontaneous
  Country: US (occurrence: US)
  Receive Date: 20170329
  Receipt Date: 20170612
  Transmission Date: 20170830
  Serious: No
  Sender: FDA-Public Use
  Company Number: US-TEVA-750343ACC

PATIENT
  Age: 66 Year
  Sex: Female

DRUGS (9)
  1. OMEPRAZOLE. [Concomitant]
     Active Substance: OMEPRAZOLE
  2. EFFEXOR XR [Concomitant]
     Active Substance: VENLAFAXINE HYDROCHLORIDE
  3. OXYBUTYNIN [Concomitant]
     Active Substance: OXYBUTYNIN
  4. AMANTADINE. [Concomitant]
     Active Substance: AMANTADINE HYDROCHLORIDE
  5. COPAXONE [Suspect]
     Active Substance: GLATIRAMER ACETATE
     Indication: MULTIPLE SCLEROSIS
     Route: 058
  6. LISINOPRIL. [Concomitant]
     Active Substance: LISINOPRIL
  7. DILTIAZEM. [Concomitant]
     Active Substance: DILTIAZEM
     Dosage: EXTENDED RELEASE CAPSULE
  8. AMPYRA [Concomitant]
     Active Substance: DALFAMPRIDINE
  9. BACLOFEN. [Concomitant]
     Active Substance: BACLOFEN

REACTIONS (3)
  - Gait disturbance [Unknown]
  - Asthenia [Unknown]
  - Muscular weakness [Not Recovered/Not Resolved]

NARRATIVE: CASE EVENT DATE: 201701
